FAERS Safety Report 7543379-4 (Version None)
Quarter: 2011Q2

REPORT INFORMATION
  Report Type: 
  Country: None (occurrence: None)
  Receive Date: 20110613
  Receipt Date: 20110603
  Transmission Date: 20111010
  Serious: Yes (Hospitalization)
  Sender: FDA-Public Use
  Company Number: US-ACTELION-A-US2011-50062

PATIENT

DRUGS (2)
  1. TRACLEER [Suspect]
     Indication: PULMONARY ARTERIAL HYPERTENSION
     Dosage: UNK
     Route: 048
     Dates: start: 20080306
  2. VENTAVIS [Concomitant]
     Dosage: UNK UG, UNK
     Route: 055
     Dates: start: 20080915, end: 20110310

REACTIONS (1)
  - MUSCLE TWITCHING [None]
